FAERS Safety Report 5446518-4 (Version None)
Quarter: 2007Q3

REPORT INFORMATION
  Report Type: 
  Country: None (occurrence: None)
  Receive Date: 20070907
  Receipt Date: 20070828
  Transmission Date: 20080115
  Serious: Yes (Other)
  Sender: FDA-Public Use
  Company Number: CA-JNJFOC-20070105401

PATIENT
  Sex: Female
  Weight: 45.36 kg

DRUGS (7)
  1. TRAMACET [Suspect]
     Indication: PAIN
     Route: 048
  2. PROPRANOLOL [Concomitant]
     Route: 065
  3. DIAZEPAM [Concomitant]
     Dosage: 2.5 - 5MG 4 TIMES A DAY
     Route: 065
  4. LOSEC I.V. [Concomitant]
     Route: 065
  5. MEVACOR [Concomitant]
     Route: 065
  6. CIPROFLOXACIN [Concomitant]
     Indication: INFECTION
     Dosage: AS NEEDED
     Route: 065
  7. WARFARIN SODIUM [Concomitant]
     Route: 065

REACTIONS (13)
  - ABASIA [None]
  - ANXIETY [None]
  - DIZZINESS [None]
  - DRUG WITHDRAWAL SYNDROME [None]
  - EATING DISORDER [None]
  - ELECTROCARDIOGRAM ABNORMAL [None]
  - INSOMNIA [None]
  - NERVOUSNESS [None]
  - THERAPEUTIC RESPONSE UNEXPECTED [None]
  - TINNITUS [None]
  - TRANSIENT ISCHAEMIC ATTACK [None]
  - TREATMENT NONCOMPLIANCE [None]
  - TREMOR [None]
